FAERS Safety Report 20015413 (Version 1)
Quarter: 2021Q4

REPORT INFORMATION
  Report Type: Spontaneous
  Country: US (occurrence: None)
  Receive Date: 20211029
  Receipt Date: 20211029
  Transmission Date: 20220303
  Serious: Yes (Other)
  Sender: FDA-Public Use
  Company Number: None

PATIENT
  Age: 70 Year
  Sex: Female
  Weight: 85.5 kg

DRUGS (9)
  1. CASIRIVIMAB\IMDEVIMAB [Suspect]
     Active Substance: CASIRIVIMAB\IMDEVIMAB
     Indication: COVID-19
     Dosage: OTHER FREQUENCY : ONCE;?
     Route: 041
     Dates: start: 20211020, end: 20211020
  2. CICLOPIROX [Concomitant]
     Active Substance: CICLOPIROX
     Dates: start: 20180823
  3. CLONAZEPAM [Concomitant]
     Active Substance: CLONAZEPAM
     Dates: start: 20160601
  4. DICLOFENAC [Concomitant]
     Active Substance: DICLOFENAC
     Dates: start: 20130529
  5. PANTOPRAZOLE [Concomitant]
     Active Substance: PANTOPRAZOLE
     Dates: start: 20180419
  6. SERTRALINE HYDROCHLORIDE [Concomitant]
     Active Substance: SERTRALINE HYDROCHLORIDE
     Dates: start: 20070501
  7. THYROID [Concomitant]
     Active Substance: LEVOTHYROXINE\LIOTHYRONINE
     Dates: start: 20180827
  8. dexamethasone drops [Concomitant]
     Dates: start: 20200205
  9. ASPIRIN [Concomitant]
     Active Substance: ASPIRIN
     Dates: start: 20070427

REACTIONS (9)
  - Heart rate increased [None]
  - Dyspnoea [None]
  - Cough [None]
  - Heart rate irregular [None]
  - Rhonchi [None]
  - Left ventricular hypertrophy [None]
  - Myocardial infarction [None]
  - Pneumonia viral [None]
  - Tachycardia [None]

NARRATIVE: CASE EVENT DATE: 20211022
